FAERS Safety Report 4635180-6 (Version None)
Quarter: 2005Q2

REPORT INFORMATION
  Report Type: 
  Country: None (occurrence: None)
  Receive Date: 20050414
  Receipt Date: 20050404
  Transmission Date: 20051028
  Serious: Yes (Hospitalization)
  Sender: FDA-Public Use
  Company Number: BR-JNJFOC-20050401032

PATIENT
  Age: 32 Year
  Sex: Female
  Weight: 66 kg

DRUGS (4)
  1. ORTHO EVRA [Suspect]
     Indication: CONTRACEPTION
     Route: 062
  2. TYLOX [Suspect]
     Indication: DRUG USE FOR UNKNOWN INDICATION
     Route: 049
  3. AMITRIPTYLINE HCL TAB [Concomitant]
  4. SCOPOLAMINE [Concomitant]

REACTIONS (3)
  - ANOREXIA [None]
  - CHOLECYSTITIS [None]
  - DERMATITIS ALLERGIC [None]
